FAERS Safety Report 8856855 (Version 4)
Quarter: 2013Q2

REPORT INFORMATION
  Report Type: Spontaneous
  Country: US (occurrence: None)
  Receive Date: 20121019
  Receipt Date: 20130415
  Transmission Date: 20140414
  Serious: Yes (Hospitalization, Other)
  Sender: FDA-Public Use
  Company Number: 2012-4733

PATIENT
  Age: 73 Year
  Sex: Female

DRUGS (4)
  1. SOMATULINE DEPOT [Suspect]
     Indication: ACROMEGALY
     Dosage: 60 MG (60 MG,1 IN 28 D),SUBCUTANEOUS
     Route: 058
     Dates: start: 20100713
  2. BYSTOLIC (NEBIVOLOL) [Concomitant]
  3. SPIRONOLACTONE (SPIRONOLACTONE) [Concomitant]
  4. HYDROCHLOROTHIAIZIDE(HYDROCHLOROTHIAZIDE) [Concomitant]

REACTIONS (11)
  - Staphylococcal infection [None]
  - Gastritis bacterial [None]
  - Back pain [None]
  - Nausea [None]
  - Asthenia [None]
  - Colon cancer [None]
  - Incision site infection [None]
  - Fall [None]
  - Fatigue [None]
  - Constipation [None]
  - Intervertebral disc degeneration [None]
